FAERS Safety Report 9095554 (Version 1)
Quarter: 2013Q1

REPORT INFORMATION
  Report Type: Spontaneous
  Country: GB (occurrence: None)
  Receive Date: 20130123
  Receipt Date: 20130123
  Transmission Date: 20140127
  Serious: Yes (Other)
  Sender: FDA-Public Use
  Company Number: GER/UKI/13/0027454

PATIENT
  Age: 67 Year
  Sex: Female

DRUGS (2)
  1. LEVOFLOXACIN (LEVOFLOXACIN) [Suspect]
     Indication: INFECTION
     Route: 048
     Dates: start: 20130101, end: 20130102
  2. LEVOTHYROXINE SODIUM (LEVOTHYROXINE) [Concomitant]

REACTIONS (6)
  - Syncope [None]
  - Loss of consciousness [None]
  - Diplegia [None]
  - Vomiting [None]
  - Asthenia [None]
  - Gastroenteritis viral [None]
